FAERS Safety Report 24924352 (Version 1)
Quarter: 2025Q1

REPORT INFORMATION
  Report Type: Spontaneous
  Country: GB (occurrence: GB)
  Receive Date: 20250204
  Receipt Date: 20250204
  Transmission Date: 20250409
  Serious: Yes (Other)
  Sender: DAIICHI
  Company Number: GB-DSJP-DS-2025-121643-GB

PATIENT
  Sex: Female

DRUGS (1)
  1. ENHERTU [Suspect]
     Active Substance: FAM-TRASTUZUMAB DERUXTECAN-NXKI
     Indication: Metastasis
     Route: 065
     Dates: start: 202401

REACTIONS (7)
  - Adverse event [Unknown]
  - Biliary obstruction [Unknown]
  - Metastases to liver [Unknown]
  - Metastases to lung [Unknown]
  - Metastases to pancreas [Unknown]
  - Gastroenteritis viral [Unknown]
  - Inappropriate schedule of product administration [Unknown]
